FAERS Safety Report 8852850 (Version 3)
Quarter: 2012Q4

REPORT INFORMATION
  Report Type: 
  Country: JP (occurrence: JP)
  Receive Date: 20121022
  Receipt Date: 20121116
  Transmission Date: 20130627
  Serious: Yes (Other)
  Sender: FDA-Public Use
  Company Number: JP-OTSUKA-JP-2012-16562

PATIENT
  Age: 74 Year
  Sex: Male
  Weight: 48 kg

DRUGS (22)
  1. SAMSCA [Suspect]
     Indication: CARDIAC FAILURE CHRONIC
     Dosage: 15 Mg milligram(s), qd
     Route: 048
     Dates: start: 20120724, end: 20120726
  2. SAMSCA [Suspect]
     Dosage: 15 Mg milligram(s), qd
     Route: 048
     Dates: start: 20120927, end: 20121001
  3. SAMSCA [Suspect]
     Dosage: 15 Mg milligram(s), daily dose
     Route: 048
     Dates: start: 20121002, end: 20121003
  4. SAMSCA [Suspect]
     Dosage: 7.5 Mg milligram(s), qd
     Route: 048
     Dates: start: 20121004, end: 20121004
  5. PLAVIX [Concomitant]
     Indication: MYOCARDIAL ISCHAEMIA
     Dosage: 75 Mg milligram(s), qd
     Route: 048
     Dates: start: 2012
  6. BAYASPIRIN [Concomitant]
     Indication: MYOCARDIAL ISCHAEMIA
     Dosage: 100 Mg milligram(s), qd
     Route: 048
     Dates: start: 2012
  7. CRESTOR [Concomitant]
     Indication: DYSLIPIDAEMIA
     Dosage: 2.5 Mg milligram(s), qd
     Route: 048
     Dates: start: 2012
  8. ZETIA [Concomitant]
     Indication: DYSLIPIDAEMIA
     Dosage: 10 Mg milligram(s), qd
     Route: 048
     Dates: start: 2012
  9. LASIX [Concomitant]
     Indication: CARDIAC FAILURE CHRONIC
     Dosage: 20 Mg milligram(s), qd
     Route: 048
     Dates: start: 2012
  10. ALDACTONE A [Concomitant]
     Indication: CARDIAC FAILURE CHRONIC
     Dosage: 25 Mg milligram(s), qd
     Route: 048
     Dates: start: 2012
  11. FLUID INFUSION [Concomitant]
     Dosage: 350 ml millilitre(s), daily dose
     Dates: start: 20120927, end: 20120927
  12. FLUID INFUSION [Concomitant]
     Dosage: 140 ml millilitre(s), daily dose
     Dates: start: 20121004, end: 20121004
  13. FLUID INFUSION [Concomitant]
     Dosage: 1050 ml millilitre(s), daily dose
     Dates: start: 20121005, end: 20121005
  14. FLUID INFUSION [Concomitant]
     Dosage: 1000 ml millilitre(s), daily dose
     Dates: start: 20121007, end: 20121007
  15. FLUID INFUSION [Concomitant]
     Dosage: 500 ml millilitre(s), daily dose
     Dates: start: 20121009, end: 20121009
  16. FERROMIA [Concomitant]
     Indication: ANAEMIA
     Dosage: 50 Mg milligram(s), qd
     Route: 048
  17. CINAL [Concomitant]
     Indication: ANAEMIA
     Dosage: 1 G gram(s), qd
     Route: 048
  18. HANP [Concomitant]
     Dosage: 0.0125 ug/kg/min, daily dose
     Dates: end: 20120924
  19. HANP [Concomitant]
     Dosage: 0.25 ug/kg/min, daily dose
     Dates: start: 20120925, end: 20120926
  20. HANP [Concomitant]
     Dosage: 0.15 ug/kg/min, daily dose
     Dates: start: 20120927, end: 20120930
  21. HANP [Concomitant]
     Dosage: 0.08 ug/kg/min, daily dose
     Dates: start: 20121001, end: 20121004
  22. HANP [Concomitant]
     Dosage: 0.05 ug/kg/min, daily dose
     Dates: start: 20121005, end: 20121005

REACTIONS (2)
  - Hypernatraemia [Recovering/Resolving]
  - Thirst [Recovering/Resolving]
